FAERS Safety Report 11397876 (Version 9)
Quarter: 2019Q1

REPORT INFORMATION
  Report Type: Report from Study
  Country: US (occurrence: US)
  Receive Date: 20150819
  Receipt Date: 20190129
  Transmission Date: 20190417
  Serious: Yes (Death, Hospitalization, Other)
  Sender: FDA-Public Use
  Company Number: US-ARIAD PHARMACEUTICALS, INC-2015US005270

PATIENT
  Age: 69 Year
  Sex: Female

DRUGS (4)
  1. PONATINIB [Suspect]
     Active Substance: PONATINIB
     Dosage: 15 MG, QD
     Route: 048
  2. PONATINIB [Suspect]
     Active Substance: PONATINIB
     Indication: CHRONIC MYELOID LEUKAEMIA
     Dosage: 15 MG, QD
     Route: 048
     Dates: start: 20150415, end: 20150723
  3. PONATINIB [Suspect]
     Active Substance: PONATINIB
     Dosage: 15 MG, UNK
     Route: 048
  4. PONATINIB [Suspect]
     Active Substance: PONATINIB
     Dosage: 30 MG, WEEKLY
     Route: 048

REACTIONS (11)
  - Death [Fatal]
  - Mitral valve calcification [Unknown]
  - Laboratory test abnormal [Unknown]
  - Heart valve replacement [Unknown]
  - Thrombosis [Unknown]
  - Pyrexia [Recovered/Resolved]
  - Hyperthyroidism [Not Recovered/Not Resolved]
  - Coronary artery stenosis [Unknown]
  - Hordeolum [Not Recovered/Not Resolved]
  - Hepatic enzyme increased [Not Recovered/Not Resolved]
  - Rash [Not Recovered/Not Resolved]

NARRATIVE: CASE EVENT DATE: 20161104
